FAERS Safety Report 9601856 (Version 1)
Quarter: 2013Q4

REPORT INFORMATION
  Report Type: Report from Study
  Country: JP (occurrence: JP)
  Receive Date: 20131007
  Receipt Date: 20131007
  Transmission Date: 20140711
  Serious: Yes (Hospitalization, Disabling)
  Sender: FDA-Public Use
  Company Number: JP-JNJFOC-20131002672

PATIENT
  Age: 59 Year
  Sex: Male

DRUGS (9)
  1. PREZISTA [Suspect]
     Indication: HIV INFECTION
     Route: 048
     Dates: start: 20120810
  2. NORVIR [Suspect]
     Indication: HIV INFECTION
     Route: 048
     Dates: start: 20120810
  3. TRUVADA [Suspect]
     Indication: HIV INFECTION
     Route: 048
     Dates: start: 20120810
  4. CELSENTRI [Suspect]
     Indication: HIV INFECTION
     Route: 048
     Dates: start: 20120810
  5. VALIXA [Suspect]
     Indication: CYTOMEGALOVIRUS CHORIORETINITIS
     Route: 048
     Dates: start: 20120803
  6. VALIXA [Suspect]
     Indication: CYTOMEGALOVIRUS CHORIORETINITIS
     Route: 048
     Dates: start: 20120713, end: 20120802
  7. ZITHROMAC [Concomitant]
     Indication: PROPHYLAXIS
     Route: 065
     Dates: start: 20120710
  8. BENAMBAX [Concomitant]
     Indication: PROPHYLAXIS
     Route: 065
     Dates: start: 20120710
  9. IRBETAN [Concomitant]
     Indication: HYPERTENSION
     Route: 048
     Dates: start: 20130113, end: 20130119

REACTIONS (1)
  - Cerebral haemorrhage [Recovering/Resolving]
